FAERS Safety Report 13162621 (Version 1)
Quarter: 2017Q1

REPORT INFORMATION
  Report Type: Spontaneous
  Country: TW (occurrence: TW)
  Receive Date: 20170130
  Receipt Date: 20170130
  Transmission Date: 20170428
  Serious: Yes (Hospitalization, Other)
  Sender: FDA-Public Use
  Company Number: TW-PFIZER INC-2017029978

PATIENT
  Age: 62 Year
  Sex: Female

DRUGS (1)
  1. SUTENT [Suspect]
     Active Substance: SUNITINIB MALATE
     Indication: RENAL CELL CARCINOMA
     Dosage: 50 MG (4 DOSE FORM), CYCLIC (DAILY, FOUR WEEKS ON AND TWO WEEKS OFF)
     Route: 048
     Dates: start: 20161230, end: 20170119

REACTIONS (2)
  - Hepatitis acute [Unknown]
  - Hepatitis B [Unknown]
